FAERS Safety Report 12978342 (Version 1)
Quarter: 2016Q4

REPORT INFORMATION
  Report Type: Spontaneous
  Country: US (occurrence: US)
  Receive Date: 20161128
  Receipt Date: 20161128
  Transmission Date: 20170207
  Serious: No
  Sender: FDA-Public Use
  Company Number: US-PFIZER INC-2016541455

PATIENT

DRUGS (9)
  1. MELATONIN [Concomitant]
     Active Substance: MELATONIN
     Indication: SLEEP DISORDER
     Dosage: AT NIGHT
  2. LYRICA [Suspect]
     Active Substance: PREGABALIN
  3. TURMERIC [Concomitant]
     Active Substance: TURMERIC
  4. ALEVE PM [Concomitant]
     Active Substance: DIPHENHYDRAMINE HYDROCHLORIDE\NAPROXEN SODIUM
     Indication: SLEEP DISORDER
     Dosage: AT NIGHT
  5. CELEBREX [Suspect]
     Active Substance: CELECOXIB
  6. GABAPENTIN. [Suspect]
     Active Substance: GABAPENTIN
  7. HYDROCODONE [Suspect]
     Active Substance: HYDROCODONE
  8. MAGNESIUM [Concomitant]
     Active Substance: MAGNESIUM
  9. D-3 [Concomitant]
     Active Substance: CHOLECALCIFEROL

REACTIONS (4)
  - Pain [Unknown]
  - Condition aggravated [Unknown]
  - Swelling [Unknown]
  - Musculoskeletal stiffness [Unknown]
